FAERS Safety Report 6905597-5 (Version None)
Quarter: 2010Q3

REPORT INFORMATION
  Report Type: 
  Country: None (occurrence: None)
  Receive Date: 20100802
  Receipt Date: 20100720
  Transmission Date: 20110219
  Serious: Yes (Death, Other)
  Sender: FDA-Public Use
  Company Number: MC201000219

PATIENT

DRUGS (4)
  1. ANGIOMAX [Suspect]
     Indication: CAROTID ARTERY STENT INSERTION
  2. ASPIRIN [Concomitant]
  3. CLOPIDOGREL [Concomitant]
  4. TICLOPIDINE (TICLOPIDINE HYDROCHLORIDE) [Concomitant]

REACTIONS (3)
  - CEREBROVASCULAR ACCIDENT [None]
  - CRANIAL NERVE PALSIES MULTIPLE [None]
  - MYOCARDIAL INFARCTION [None]
